FAERS Safety Report 24302209 (Version 1)
Quarter: 2024Q3

REPORT INFORMATION
  Report Type: Spontaneous
  Country: US (occurrence: US)
  Receive Date: 20240910
  Receipt Date: 20240910
  Transmission Date: 20241017
  Serious: No
  Sender: ABBVIE
  Company Number: US-ABBVIE-5913904

PATIENT
  Sex: Female
  Weight: 48 kg

DRUGS (4)
  1. NEBIVOLOL [Suspect]
     Active Substance: NEBIVOLOL
     Indication: Hypertension
     Dosage: FORM STRENGTH: 10 MILLIGRAM, HALF TABLET
     Route: 048
     Dates: start: 202205, end: 202205
  2. NEBIVOLOL [Suspect]
     Active Substance: NEBIVOLOL
     Indication: Hypertension
     Dosage: FORM STRENGTH: 10 MILLIGRAM, HALF TABLET
     Route: 048
     Dates: start: 2022
  3. BYSTOLIC [Suspect]
     Active Substance: NEBIVOLOL HYDROCHLORIDE
     Indication: Hypertension
     Dosage: FORM STRENGTH: 10 MILLIGRAM, HALF TABLET,?END DATE 2022
     Route: 048
     Dates: start: 202205
  4. EPIPEN [Concomitant]
     Active Substance: EPINEPHRINE
     Indication: Product used for unknown indication
     Dates: start: 2022

REACTIONS (8)
  - Swollen tongue [Recovered/Resolved]
  - Expired product administered [Not Recovered/Not Resolved]
  - Swollen tongue [Recovered/Resolved]
  - Speech disorder [Recovered/Resolved]
  - Lip swelling [Recovered/Resolved]
  - Swollen tongue [Recovered/Resolved]
  - Lip swelling [Recovered/Resolved]
  - Lip swelling [Recovered/Resolved]

NARRATIVE: CASE EVENT DATE: 20240101
